FAERS Safety Report 19021133 (Version 1)
Quarter: 2021Q1

REPORT INFORMATION
  Report Type: Report from Study
  Country: DE (occurrence: DE)
  Receive Date: 20210317
  Receipt Date: 20210317
  Transmission Date: 20210420
  Serious: Yes (Other)
  Sender: FDA-Public Use
  Company Number: DE-DSJP-DSE-2021-107070

PATIENT
  Age: 74 Year
  Sex: Male
  Weight: 95 kg

DRUGS (1)
  1. EDOXABAN [Suspect]
     Active Substance: EDOXABAN TOSYLATE
     Indication: ATRIAL FIBRILLATION
     Dosage: 60 MG, QD
     Route: 048
     Dates: start: 20180119, end: 20191017

REACTIONS (2)
  - Ileus [Unknown]
  - Haematemesis [Unknown]

NARRATIVE: CASE EVENT DATE: 20191018
